FAERS Safety Report 20836556 (Version 3)
Quarter: 2022Q3

REPORT INFORMATION
  Report Type: Spontaneous
  Country: US (occurrence: US)
  Receive Date: 20220517
  Receipt Date: 20220824
  Transmission Date: 20221026
  Serious: Yes (Hospitalization)
  Sender: FDA-Public Use
  Company Number: US-BRISTOL-MYERS SQUIBB COMPANY-2022-017718

PATIENT
  Age: 69 Year
  Sex: Male

DRUGS (1)
  1. REVLIMID [Suspect]
     Active Substance: LENALIDOMIDE
     Indication: Colon cancer
     Dosage: TAKE 1 CAPSULE BY ?MOUTH WHOLE ?WITH WATER, WITH ?OR WITHOUT ?FOOD, AT ?APPROXIMATELY ?THE SAME TIME
     Route: 048
     Dates: start: 20220315

REACTIONS (5)
  - Nausea [Unknown]
  - Restlessness [Unknown]
  - Product dose omission issue [Recovered/Resolved]
  - Constipation [Recovered/Resolved]
  - Intentional product use issue [Unknown]
